FAERS Safety Report 14281996 (Version 2)
Quarter: 2020Q3

REPORT INFORMATION
  Report Type: Report from Study
  Country: ES (occurrence: ES)
  Receive Date: 20171213
  Receipt Date: 20190123
  Transmission Date: 20201105
  Serious: Yes (Hospitalization)
  Sender: FDA-Public Use
  Company Number: ES-ASTRAZENECA-2017SE67004

PATIENT
  Age: 22380 Day
  Sex: Male

DRUGS (23)
  1. DURVALUMAB. [Suspect]
     Active Substance: DURVALUMAB
     Indication: SMALL CELL LUNG CANCER
     Route: 042
     Dates: start: 20171025, end: 20171025
  2. TREMELIMUMAB. [Suspect]
     Active Substance: TREMELIMUMAB
     Indication: SMALL CELL LUNG CANCER
     Route: 042
     Dates: start: 20170614, end: 20170614
  3. ETOPOSIDE. [Suspect]
     Active Substance: ETOPOSIDE
     Indication: SMALL CELL LUNG CANCER
     Dosage: 100 MG/M2 EVERY 3 WEEKS
     Route: 065
     Dates: start: 20170615, end: 20170615
  4. CISPLATIN. [Suspect]
     Active Substance: CISPLATIN
     Indication: SMALL CELL LUNG CANCER
     Dosage: 75 MG/M2
     Route: 065
     Dates: start: 20170710, end: 20170710
  5. DURVALUMAB. [Suspect]
     Active Substance: DURVALUMAB
     Indication: SMALL CELL LUNG CANCER
     Route: 042
     Dates: start: 20170614, end: 20170614
  6. DURVALUMAB. [Suspect]
     Active Substance: DURVALUMAB
     Indication: SMALL CELL LUNG CANCER
     Route: 042
     Dates: start: 20170807, end: 20170820
  7. TREMELIMUMAB. [Suspect]
     Active Substance: TREMELIMUMAB
     Indication: SMALL CELL LUNG CANCER
     Route: 042
     Dates: start: 20171025, end: 20171025
  8. TREMELIMUMAB. [Suspect]
     Active Substance: TREMELIMUMAB
     Indication: SMALL CELL LUNG CANCER
     Route: 042
     Dates: start: 20170807, end: 20170807
  9. ETOPOSIDE. [Suspect]
     Active Substance: ETOPOSIDE
     Indication: SMALL CELL LUNG CANCER
     Dosage: 100 MG/M2 EVERY 3 WEEKS
     Route: 065
     Dates: start: 20170808, end: 20170808
  10. ETOPOSIDE. [Suspect]
     Active Substance: ETOPOSIDE
     Indication: SMALL CELL LUNG CANCER
     Dosage: 100 MG/M2 EVERY 3 WEEKS
     Route: 065
     Dates: start: 20170901, end: 20170901
  11. DURVALUMAB. [Suspect]
     Active Substance: DURVALUMAB
     Indication: SMALL CELL LUNG CANCER
     Route: 042
     Dates: start: 20170927, end: 20170927
  12. ETOPOSIDE. [Suspect]
     Active Substance: ETOPOSIDE
     Indication: SMALL CELL LUNG CANCER
     Dosage: 100 MG/M2 EVERY 3 WEEKS
     Route: 065
     Dates: start: 20170807, end: 20170807
  13. ETOPOSIDE. [Suspect]
     Active Substance: ETOPOSIDE
     Indication: SMALL CELL LUNG CANCER
     Dosage: 100 MG/M2 EVERY 3 WEEKS
     Route: 065
     Dates: start: 20170809, end: 20170809
  14. ETOPOSIDE. [Suspect]
     Active Substance: ETOPOSIDE
     Indication: SMALL CELL LUNG CANCER
     Dosage: 100 MG/M2 EVERY 3 WEEKS
     Route: 065
     Dates: start: 20170902, end: 20170902
  15. CISPLATIN. [Suspect]
     Active Substance: CISPLATIN
     Indication: SMALL CELL LUNG CANCER
     Dosage: 75 MG/M2
     Route: 065
     Dates: start: 20170614, end: 20170614
  16. CISPLATIN. [Suspect]
     Active Substance: CISPLATIN
     Indication: SMALL CELL LUNG CANCER
     Dosage: 75 MG/M2
     Route: 065
     Dates: start: 20170807, end: 20170807
  17. ETOPOSIDE. [Suspect]
     Active Substance: ETOPOSIDE
     Indication: SMALL CELL LUNG CANCER
     Dosage: 100 MG/M2 EVERY 3 WEEKS
     Route: 065
     Dates: start: 20170614, end: 20170614
  18. CISPLATIN. [Suspect]
     Active Substance: CISPLATIN
     Indication: SMALL CELL LUNG CANCER
     Dosage: 75 MG/M2
     Route: 065
     Dates: start: 20170831, end: 20170831
  19. ETOPOSIDE. [Suspect]
     Active Substance: ETOPOSIDE
     Indication: SMALL CELL LUNG CANCER
     Dosage: 100 MG/M2 EVERY 3 WEEKS
     Route: 065
     Dates: start: 20170831, end: 20170831
  20. ETOPOSIDE. [Suspect]
     Active Substance: ETOPOSIDE
     Indication: SMALL CELL LUNG CANCER
     Dosage: 100 MG/M2 EVERY 3 WEEKS
     Route: 065
     Dates: start: 20170616, end: 20170616
  21. ETOPOSIDE. [Suspect]
     Active Substance: ETOPOSIDE
     Indication: SMALL CELL LUNG CANCER
     Dosage: 100 MG/M2 EVERY 3 WEEKS
     Route: 065
     Dates: start: 20170712, end: 20170712
  22. ETOPOSIDE. [Suspect]
     Active Substance: ETOPOSIDE
     Indication: SMALL CELL LUNG CANCER
     Dosage: 100 MG/M2 EVERY 3 WEEKS
     Route: 065
     Dates: start: 20170710, end: 20170710
  23. ETOPOSIDE. [Suspect]
     Active Substance: ETOPOSIDE
     Indication: SMALL CELL LUNG CANCER
     Dosage: 100 MG/M2 EVERY 3 WEEKS
     Route: 065
     Dates: start: 20170711, end: 20170711

REACTIONS (2)
  - Neutropenia [Recovered/Resolved]
  - Diarrhoea [Recovered/Resolved]

NARRATIVE: CASE EVENT DATE: 20170627
